FAERS Safety Report 7575129-X (Version None)
Quarter: 2011Q2

REPORT INFORMATION
  Report Type: 
  Country: None (occurrence: None)
  Receive Date: 20110627
  Receipt Date: 20091009
  Transmission Date: 20111010
  Serious: Yes (Other)
  Sender: FDA-Public Use
  Company Number: US-BAYER-200935578NA

PATIENT
  Age: 43 Year
  Sex: Female
  Weight: 104.76 kg

DRUGS (23)
  1. TRASYLOL [Suspect]
     Dosage: 400 ML, UNK
     Route: 042
     Dates: start: 20040614, end: 20040614
  2. LASIX [Concomitant]
     Dosage: 40 MG, QD
     Route: 048
     Dates: start: 20030501
  3. LOPRESSOR [Concomitant]
     Dosage: 25 MG, BID
     Route: 048
  4. HEPARIN [Concomitant]
     Dosage: UNK
     Dates: start: 20040614
  5. MANNITOL [Concomitant]
     Dosage: 12.5 G, UNK
     Dates: start: 20040614, end: 20040614
  6. PLAVIX [Concomitant]
     Dosage: 75 MG, QD
     Route: 048
  7. GENTAMYCIN SULFATE [Concomitant]
     Dosage: 80 MG, UNK
     Route: 042
  8. DOPAMINE HCL [Concomitant]
     Dosage: RENAL DOSE
     Dates: start: 20040614, end: 20040614
  9. KEFZOL [Concomitant]
     Dosage: 2 G, UNK
     Route: 042
  10. PROTAMINE SULFATE [Concomitant]
     Dosage: 400 MG, UNK
     Route: 042
     Dates: start: 20040614, end: 20040614
  11. METOPROLOL TARTRATE [Concomitant]
     Dosage: 100 MG, BID
     Route: 048
     Dates: start: 20040428
  12. PRILOSEC [Concomitant]
     Dosage: 20 MG, QD
     Route: 048
  13. CIPROFLOXACIN HCL [Concomitant]
     Dosage: 200 MG EVERY 12 HRS
     Route: 042
  14. LIPITOR [Concomitant]
     Dosage: 40 MG, QD
     Route: 048
  15. TOPROL-XL [Concomitant]
     Dosage: 50 MG, QD
     Route: 048
     Dates: end: 20040428
  16. TRASYLOL [Suspect]
     Indication: PRODUCT USED FOR UNKNOWN INDICATION
     Dosage: 200ML PUMP PRIME
     Route: 042
     Dates: start: 20040614, end: 20040614
  17. ACCUPRIL [Concomitant]
     Dosage: 10 MG, QD
     Route: 048
     Dates: end: 20040104
  18. VANCOMYCIN [Concomitant]
     Dosage: 1 G, UNK
     Route: 042
  19. LISINOPRIL [Concomitant]
     Dosage: 10 MG, BID
     Route: 048
     Dates: start: 20040104
  20. ACETYLSALICYLIC ACID SRT [Concomitant]
     Dosage: 325 MG, QD
     Route: 048
  21. PROZAC [Concomitant]
     Dosage: 10 MG, QD
     Route: 048
     Dates: start: 20020101
  22. NORVASC [Concomitant]
     Dosage: 5 MG STAT
     Route: 048
     Dates: start: 20040608
  23. LIDOCAINE [Concomitant]
     Dosage: UNK
     Dates: start: 20040614, end: 20040614

REACTIONS (13)
  - RENAL IMPAIRMENT [None]
  - EMOTIONAL DISTRESS [None]
  - STRESS [None]
  - FEAR [None]
  - INJURY [None]
  - ANXIETY [None]
  - CEREBROVASCULAR ACCIDENT [None]
  - PAIN [None]
  - RENAL FAILURE [None]
  - UNEVALUABLE EVENT [None]
  - DEPRESSION [None]
  - RENAL INJURY [None]
  - PARALYSIS [None]
